FAERS Safety Report 8134234-X (Version None)
Quarter: 2012Q1

REPORT INFORMATION
  Report Type: 
  Country: None (occurrence: None)
  Receive Date: 20120201
  Receipt Date: 20120120
  Transmission Date: 20120608
  Serious: Yes (Other)
  Sender: FDA-Public Use
  Company Number: 2011029510

PATIENT
  Age: 38 Year
  Sex: Female
  Weight: 108.8633 kg

DRUGS (23)
  1. LASIX [Concomitant]
  2. MULTIVITAMIN (MULTIVITAMIN /00831701/) () [Concomitant]
  3. HIZENTRA [Suspect]
  4. FISH OIL (FISH OIL) () [Concomitant]
  5. IMURAN [Concomitant]
  6. CRANBERRY (VACCINIUM MACROCARPON) () [Concomitant]
  7. ACETAMINOPHEN [Concomitant]
  8. AF-IBUPROFEN (IBUPROFEN) () [Concomitant]
  9. HIZENTRA [Suspect]
     Indication: IMMUNODEFICIENCY COMMON VARIABLE
     Dosage: SEE IMAGE
     Route: 058
     Dates: start: 20110328
  10. HIZENTRA [Suspect]
     Indication: IMMUNODEFICIENCY COMMON VARIABLE
     Dosage: SEE IMAGE
     Route: 058
     Dates: start: 20110808
  11. HIZENTRA [Suspect]
     Indication: IMMUNODEFICIENCY COMMON VARIABLE
     Dosage: SEE IMAGE
     Route: 058
     Dates: start: 20120101
  12. HIZENTRA [Suspect]
     Indication: IMMUNODEFICIENCY COMMON VARIABLE
     Dosage: SEE IMAGE
     Route: 058
     Dates: start: 20111108
  13. ZITHROMAX [Concomitant]
  14. CIPRO XR [Concomitant]
  15. ASCORBIC ACID [Concomitant]
  16. MILK THISTLE (SILYBUM MARIANUM) () [Concomitant]
  17. HIZENTRA [Suspect]
  18. IRON (IRON) () [Concomitant]
  19. HIZENTRA [Suspect]
  20. PREDNISONE TAB [Concomitant]
  21. B-COMPLEX WITH VITAMIN C (VITAMIN B-COMPLEX [Concomitant]
  22. CINNAMON (CINNAMOMUM VERUM) () [Concomitant]
  23. POTASSIUM CHLORIDE [Concomitant]

REACTIONS (5)
  - EAR INFECTION [None]
  - SINUSITIS [None]
  - RHINITIS [None]
  - EYE INFECTION [None]
  - PHARYNGITIS [None]
